FAERS Safety Report 6358336-3 (Version None)
Quarter: 2009Q3

REPORT INFORMATION
  Report Type: 
  Country: None (occurrence: None)
  Receive Date: 20090916
  Receipt Date: 20090904
  Transmission Date: 20100115
  Serious: Yes (Other)
  Sender: FDA-Public Use
  Company Number: AU-PFIZER INC-2009264721

PATIENT
  Age: 72 Year

DRUGS (6)
  1. LIPITOR [Suspect]
     Dosage: 40 MG, 1X/DAY
     Dates: start: 20080801
  2. LIPITOR [Suspect]
     Dosage: 20 MG, 1X/DAY
  3. NEXIUM [Concomitant]
  4. ISOPTIN [Concomitant]
     Dosage: 240 MG, 2X/DAY
  5. COVERSYL [Concomitant]
     Dosage: 5 MG, 1X/DAY
  6. ACETYLSALICYLIC ACID [Concomitant]

REACTIONS (3)
  - ABDOMINAL DISCOMFORT [None]
  - BLOOD CHOLESTEROL INCREASED [None]
  - THORACIC VERTEBRAL FRACTURE [None]
